FAERS Safety Report 6161196-7 (Version None)
Quarter: 2009Q2

REPORT INFORMATION
  Report Type: 
  Country: None (occurrence: None)
  Receive Date: 20090421
  Receipt Date: 20090415
  Transmission Date: 20091009
  Serious: Yes (Disabling)
  Sender: FDA-Public Use
  Company Number: US-JNJFOC-20090300713

PATIENT
  Sex: Female
  Weight: 44.45 kg

DRUGS (7)
  1. DURAGESIC-100 [Suspect]
     Indication: ARTHRALGIA
     Route: 062
  2. TYLENOL (CAPLET) [Concomitant]
     Indication: ARTHRITIS
     Dosage: AS NEEDED
     Route: 048
  3. MARINOL [Concomitant]
     Indication: INCREASED APPETITE
     Route: 048
  4. ROPINIROLE [Concomitant]
     Indication: MUSCLE SPASMS
     Route: 048
  5. MIRALAX [Concomitant]
     Indication: FAECES HARD
     Dosage: AS NEEDED
     Route: 048
  6. XANOX [Concomitant]
     Route: 048
  7. XANOX [Concomitant]
     Indication: NERVOUSNESS
     Route: 048

REACTIONS (7)
  - ANOREXIA [None]
  - ASTHENIA [None]
  - BALANCE DISORDER [None]
  - HEADACHE [None]
  - RETCHING [None]
  - TREMOR [None]
  - WEIGHT DECREASED [None]
